FAERS Safety Report 13101124 (Version 1)
Quarter: 2017Q1

REPORT INFORMATION
  Report Type: Spontaneous
  Country: JP (occurrence: JP)
  Receive Date: 20170110
  Receipt Date: 20170110
  Transmission Date: 20170428
  Serious: Yes (Death, Other)
  Sender: FDA-Public Use
  Company Number: JP-PFIZER INC-2017005856

PATIENT
  Age: 75 Year

DRUGS (2)
  1. LYRICA [Suspect]
     Active Substance: PREGABALIN
     Dosage: 75 MG, 2X/DAY (MORNING AND EVENING)
     Route: 048
     Dates: start: 20161228
  2. INSULIN [Concomitant]
     Active Substance: INSULIN NOS
     Indication: DIABETES MELLITUS
     Dosage: UNK

REACTIONS (4)
  - Pulse absent [Unknown]
  - Peripheral coldness [Unknown]
  - Cardiac failure [Fatal]
  - Somnolence [Unknown]

NARRATIVE: CASE EVENT DATE: 20161229
